FAERS Safety Report 9397570 (Version 3)
Quarter: 2013Q4

REPORT INFORMATION
  Report Type: Report from Study
  Country: CA (occurrence: CA)
  Receive Date: 20130712
  Receipt Date: 20131024
  Transmission Date: 20140711
  Serious: Yes (Hospitalization, Other)
  Sender: FDA-Public Use
  Company Number: CA-ROCHE-1247221

PATIENT
  Age: 71 Year
  Sex: Male
  Weight: 122.7 kg

DRUGS (6)
  1. ACTEMRA [Suspect]
     Indication: RHEUMATOID ARTHRITIS
     Route: 042
     Dates: start: 20130307, end: 20130529
  2. ALLOPURINOL [Concomitant]
     Route: 065
  3. ARTHROTEC [Concomitant]
  4. WARFARIN [Concomitant]
  5. INSULIN [Concomitant]
  6. METFORMIN [Concomitant]
     Route: 065

REACTIONS (2)
  - Gastrointestinal haemorrhage [Unknown]
  - Drug ineffective [Unknown]
